FAERS Safety Report 5754280-0 (Version None)
Quarter: 2008Q2

REPORT INFORMATION
  Report Type: 
  Country: None (occurrence: None)
  Receive Date: 20080527
  Receipt Date: 20080515
  Transmission Date: 20081010
  Serious: Yes (Hospitalization)
  Sender: FDA-Public Use
  Company Number: 2007-03209

PATIENT
  Age: 51 Year
  Sex: Male
  Weight: 73 kg

DRUGS (7)
  1. VELCADE [Suspect]
     Indication: MULTIPLE MYELOMA
  2. DOXORUBICIN HCL [Suspect]
     Indication: MULTIPLE MYELOMA
  3. DEXAMETHASONE TAB [Suspect]
     Indication: MULTIPLE MYELOMA
  4. CYCLOPHOSPHAMIDE [Suspect]
     Indication: MULTIPLE MYELOMA
  5. ETOPOSIDE [Suspect]
     Indication: MULTIPLE MYELOMA
  6. CISPLATIN [Suspect]
     Indication: MULTIPLE MYELOMA
  7. ALKERAN [Suspect]
     Indication: MULTIPLE MYELOMA
     Dates: start: 20061206, end: 20061206

REACTIONS (1)
  - FEBRILE BONE MARROW APLASIA [None]
